FAERS Safety Report 9249351 (Version 2)
Quarter: 2013Q3

REPORT INFORMATION
  Report Type: Spontaneous
  Country: IT (occurrence: IT)
  Receive Date: 20130423
  Receipt Date: 20130729
  Transmission Date: 20140515
  Serious: Yes (Hospitalization)
  Sender: FDA-Public Use
  Company Number: IT-TEVA-398240ISR

PATIENT
  Age: 57 Year
  Sex: Female

DRUGS (6)
  1. OXALIPLATIN [Suspect]
     Indication: RECTAL ADENOCARCINOMA
     Route: 042
     Dates: start: 20111114, end: 20130403
  2. IRINOTECAN CLORIDRATO TRIIDRATO [Concomitant]
     Dates: start: 20111107, end: 20130327
  3. BEVACIZUMAB [Concomitant]
     Dates: start: 20111107, end: 20130327
  4. TRIATEC [Concomitant]
     Indication: HYPERTENSION
  5. ALDACTONE [Concomitant]
     Indication: HYPERTENSION
  6. SELEPARINA [Concomitant]
     Indication: THROMBOSIS PROPHYLAXIS

REACTIONS (3)
  - Injection site pain [Recovering/Resolving]
  - Application site hyperaesthesia [Recovering/Resolving]
  - Hyperaesthesia [Recovering/Resolving]
